FAERS Safety Report 20802580 (Version 1)
Quarter: 2022Q2

REPORT INFORMATION
  Report Type: Spontaneous
  Country: US (occurrence: None)
  Receive Date: 20220509
  Receipt Date: 20220509
  Transmission Date: 20220721
  Serious: Yes (Other)
  Sender: FDA-Public Use
  Company Number: None

PATIENT
  Age: 60 Year
  Sex: Female
  Weight: 55.8 kg

DRUGS (1)
  1. GADAVIST [Suspect]
     Active Substance: GADOBUTROL
     Indication: Breast cancer
     Dosage: OTHER FREQUENCY : IV BOLUS;?
     Route: 040
     Dates: start: 20220506, end: 20220506

REACTIONS (3)
  - Pruritus [None]
  - Urticaria [None]
  - Scan with contrast [None]

NARRATIVE: CASE EVENT DATE: 20220506
